FAERS Safety Report 19566332 (Version 1)
Quarter: 2021Q3

REPORT INFORMATION
  Report Type: Spontaneous
  Country: US (occurrence: US)
  Receive Date: 20210714
  Receipt Date: 20210714
  Transmission Date: 20211014
  Serious: Yes (Other)
  Sender: FDA-Public Use
  Company Number: US-PFIZER INC-2020443178

PATIENT
  Age: 48 Year
  Sex: Male

DRUGS (1)
  1. RETACRIT [Suspect]
     Active Substance: EPOETIN ALFA-EPBX
     Dosage: 40000 IU Q 5 DAYS

REACTIONS (4)
  - Off label use [Unknown]
  - Ulcer [Not Recovered/Not Resolved]
  - Pain [Unknown]
  - Product dose omission issue [Unknown]
